FAERS Safety Report 13138345 (Version 1)
Quarter: 2017Q1

REPORT INFORMATION
  Report Type: Spontaneous
  Country: US (occurrence: US)
  Receive Date: 20170123
  Receipt Date: 20170123
  Transmission Date: 20170428
  Serious: No
  Sender: FDA-Public Use
  Company Number: US-UNITED THERAPEUTICS-UNT-2016-011742

PATIENT
  Age: 56 Year
  Sex: Female
  Weight: 104.76 kg

DRUGS (2)
  1. WARFARIN [Concomitant]
     Active Substance: WARFARIN
     Indication: PRODUCT USED FOR UNKNOWN INDICATION
  2. REMODULIN [Suspect]
     Active Substance: TREPROSTINIL
     Indication: PULMONARY ARTERIAL HYPERTENSION
     Dosage: 0.026 ?G/KG, CONTINUING
     Route: 058
     Dates: start: 20150130

REACTIONS (5)
  - Infusion site discolouration [Unknown]
  - Infusion site pain [Unknown]
  - Infusion site infection [Unknown]
  - Infusion site haemorrhage [Unknown]
  - Infusion site discharge [Unknown]

NARRATIVE: CASE EVENT DATE: 201607
